FAERS Safety Report 4590175-6 (Version None)
Quarter: 2005Q1

REPORT INFORMATION
  Report Type: 
  Country: None (occurrence: None)
  Receive Date: 20050217
  Receipt Date: 20050202
  Transmission Date: 20050727
  Serious: Yes (Hospitalization)
  Sender: FDA-Public Use
  Company Number: 200313737

PATIENT
  Age: 38 Year
  Sex: Female
  Weight: 50.8029 kg

DRUGS (9)
  1. BOTOX COSMETIC [Suspect]
     Indication: SKIN WRINKLING
     Dosage: 20 U NITS PRN IM
     Route: 030
     Dates: start: 20030918, end: 20030918
  2. BOTOX COSMETIC [Suspect]
     Indication: SKIN WRINKLING
     Dosage: 24 UNITS PRN IM
     Route: 030
     Dates: start: 20030923, end: 20030923
  3. ANTIBIOTICS [Concomitant]
  4. IBUPROFEN [Concomitant]
  5. DEMEROL [Concomitant]
  6. MORPHINE [Concomitant]
  7. AMBIEN [Concomitant]
  8. VICODIN [Concomitant]
  9. STEROID [Concomitant]

REACTIONS (19)
  - ABDOMINAL DISTENSION [None]
  - ARTHRALGIA [None]
  - CHEST PAIN [None]
  - DRUG TOXICITY [None]
  - DYSPHAGIA [None]
  - DYSPNOEA [None]
  - EAR PAIN [None]
  - EUSTACHIAN TUBE DISORDER [None]
  - FATIGUE [None]
  - INFLAMMATION [None]
  - LYMPHADENOPATHY [None]
  - LYMPHOMA [None]
  - NAUSEA [None]
  - NECK PAIN [None]
  - NERVE INJURY [None]
  - OXYGEN SATURATION DECREASED [None]
  - PAIN [None]
  - PNEUMONIA [None]
  - UPPER RESPIRATORY TRACT INFECTION [None]
